FAERS Safety Report 12488187 (Version 1)
Quarter: 2016Q2

REPORT INFORMATION
  Report Type: Spontaneous
  Country: GB (occurrence: GB)
  Receive Date: 20160622
  Receipt Date: 20160622
  Transmission Date: 20160815
  Serious: Yes (Hospitalization)
  Sender: FDA-Public Use
  Company Number: GB-ASTRAZENECA-2016SE65512

PATIENT
  Age: 53 Year
  Sex: Male

DRUGS (13)
  1. AMLODIPINE [Concomitant]
     Active Substance: AMLODIPINE BESYLATE
  2. NOVORAPID [Concomitant]
     Active Substance: INSULIN ASPART
  3. SIMVASTATIN. [Concomitant]
     Active Substance: SIMVASTATIN
  4. FENOFIBRATE. [Concomitant]
     Active Substance: FENOFIBRATE
  5. METFORMIN [Concomitant]
     Active Substance: METFORMIN HYDROCHLORIDE
  6. LINAGLIPTIN [Concomitant]
     Active Substance: LINAGLIPTIN
  7. ATENOLOL. [Concomitant]
     Active Substance: ATENOLOL
  8. LANSOPRAZOLE. [Concomitant]
     Active Substance: LANSOPRAZOLE
     Dosage: ALSO HELD
  9. LEVEMIR [Concomitant]
     Active Substance: INSULIN DETEMIR
  10. RAMIPRIL. [Concomitant]
     Active Substance: RAMIPRIL
     Dosage: WITHHELD
  11. AMOXICILLIN. [Concomitant]
     Active Substance: AMOXICILLIN
  12. ASPIRIN. [Concomitant]
     Active Substance: ASPIRIN
  13. DAPAGLIFLOZIN [Suspect]
     Active Substance: DAPAGLIFLOZIN
     Indication: TYPE 2 DIABETES MELLITUS
     Route: 048
     Dates: start: 20160525, end: 20160603

REACTIONS (2)
  - Generalised tonic-clonic seizure [Recovered/Resolved]
  - Hyponatraemia [Unknown]

NARRATIVE: CASE EVENT DATE: 20160602
